FAERS Safety Report 5441416-4 (Version None)
Quarter: 2007Q3

REPORT INFORMATION
  Report Type: 
  Country: None (occurrence: None)
  Receive Date: 20070828
  Receipt Date: 20070828
  Transmission Date: 20080115
  Serious: Yes (Life-Threatening, Other)
  Sender: FDA-Public Use
  Company Number: None

PATIENT
  Age: 42 Month
  Sex: Female
  Weight: 56.6996 kg

DRUGS (1)
  1. RELAFEN [Suspect]
     Indication: RHEUMATOID ARTHRITIS
     Dosage: 500MG  3X A DAY  PO
     Route: 048
     Dates: start: 20050101, end: 20070827

REACTIONS (1)
  - STEVENS-JOHNSON SYNDROME [None]
